FAERS Safety Report 18376441 (Version 2)
Quarter: 2020Q4

REPORT INFORMATION
  Report Type: Spontaneous
  Country: DE (occurrence: DE)
  Receive Date: 20201013
  Receipt Date: 20201109
  Transmission Date: 20210114
  Serious: Yes (Other)
  Sender: FDA-Public Use
  Company Number: DE-GLAXOSMITHKLINE-DE2020EME201319

PATIENT
  Age: 82 Year
  Sex: Male
  Weight: 81 kg

DRUGS (3)
  1. VERAPAMIL HYDROCHLORIDE. [Concomitant]
     Active Substance: VERAPAMIL HYDROCHLORIDE
     Indication: PRODUCT USED FOR UNKNOWN INDICATION
     Dosage: 120 MG, QD
  2. NUCALA [Suspect]
     Active Substance: MEPOLIZUMAB
     Indication: ASTHMA
     Dosage: UNK
     Route: 042
     Dates: start: 201708
  3. APIXABAN [Concomitant]
     Active Substance: APIXABAN
     Indication: PRODUCT USED FOR UNKNOWN INDICATION
     Dosage: 5 MG, BID

REACTIONS (7)
  - Rash [Unknown]
  - Blister [Unknown]
  - Urticaria [Unknown]
  - Pustule [Unknown]
  - Erythema multiforme [Recovered/Resolved]
  - Skin exfoliation [Unknown]
  - Lip erosion [Unknown]

NARRATIVE: CASE EVENT DATE: 202010
